FAERS Safety Report 5846117-6 (Version None)
Quarter: 2008Q3

REPORT INFORMATION
  Report Type: 
  Country: None (occurrence: None)
  Receive Date: 20080814
  Receipt Date: 20080805
  Transmission Date: 20090109
  Serious: Yes (Other)
  Sender: FDA-Public Use
  Company Number: GB-MERCK-0808USA01407

PATIENT
  Sex: Male

DRUGS (4)
  1. PRINIVIL [Suspect]
     Route: 048
  2. PRINIVIL [Suspect]
     Route: 065
  3. GABAPENTIN [Suspect]
     Route: 048
  4. LYRICA [Suspect]
     Route: 048

REACTIONS (5)
  - BLOOD PRESSURE DECREASED [None]
  - CARDIAC FAILURE [None]
  - DRUG INEFFECTIVE [None]
  - DYSPNOEA [None]
  - SYNCOPE [None]
